FAERS Safety Report 13855188 (Version 1)
Quarter: 2017Q3

REPORT INFORMATION
  Report Type: Report from Study
  Country: ES (occurrence: ES)
  Receive Date: 20170810
  Receipt Date: 20170810
  Transmission Date: 20171127
  Serious: Yes (Hospitalization)
  Sender: FDA-Public Use
  Company Number: ES-PFIZER INC-2017343660

PATIENT
  Age: 87 Year
  Sex: Female

DRUGS (4)
  1. ORFIDAL [Suspect]
     Active Substance: LORAZEPAM
     Dosage: 1 MG, 2X/DAY (1-0-1)
     Route: 048
     Dates: start: 2016
  2. DOGMATIL [Interacting]
     Active Substance: SULPIRIDE
     Indication: DEPRESSION
     Dosage: 50 MG, 2X/DAY
     Route: 048
     Dates: start: 2016, end: 20170305
  3. NOBRITOL [Interacting]
     Active Substance: AMITRIPTYLINE HYDROCHLORIDE\MEDAZEPAM
     Indication: DEPRESSION
     Dosage: UNK, 2X/DAY 0-1-1
     Route: 048
     Dates: start: 2016, end: 20170305
  4. DISTRANEURINE /00027501/ [Interacting]
     Active Substance: CLOMETHIAZOLE
     Dosage: UNK UNK, 1X/DAY 0-0-1
     Route: 048
     Dates: start: 2016

REACTIONS (2)
  - Respiratory failure [Recovering/Resolving]
  - Drug interaction [Recovering/Resolving]

NARRATIVE: CASE EVENT DATE: 201703
